FAERS Safety Report 9580342 (Version 1)
Quarter: 2013Q4

REPORT INFORMATION
  Report Type: Spontaneous
  Country: US (occurrence: US)
  Receive Date: 20131002
  Receipt Date: 20131002
  Transmission Date: 20140711
  Serious: No
  Sender: FDA-Public Use
  Company Number: US-009507513-1309USA010736

PATIENT
  Sex: Female
  Weight: 63.49 kg

DRUGS (7)
  1. VICTRELIS [Suspect]
     Dosage: TAKE 800MG (4-200MG CAPS) BY MOUTH THREE TIMES ADA Y (EVERY 7-9 HOURS) STARTING ON WEEK 5
     Route: 048
  2. PEGASYS [Suspect]
     Dosage: 180MCG/M
  3. REBETOL [Suspect]
     Route: 048
  4. EFFEXOR [Concomitant]
     Route: 048
  5. XANAX [Concomitant]
     Route: 048
  6. ADDERALL TABLETS [Concomitant]
     Route: 048
  7. ZOFRAN [Concomitant]
     Route: 048

REACTIONS (10)
  - Restless legs syndrome [Unknown]
  - Pain in extremity [Unknown]
  - Neutrophil count decreased [Unknown]
  - Depression [Unknown]
  - Dehydration [Unknown]
  - Fatigue [Unknown]
  - Anaemia [Unknown]
  - Red blood cell count decreased [Unknown]
  - White blood cell count decreased [Unknown]
  - Platelet count decreased [Unknown]
